FAERS Safety Report 5093039-7 (Version None)
Quarter: 2006Q3

REPORT INFORMATION
  Report Type: 
  Country: None (occurrence: None)
  Receive Date: 20060728
  Receipt Date: 20060607
  Transmission Date: 20061208
  Serious: No
  Sender: FDA-Public Use
  Company Number: 253934

PATIENT
  Age: 82 Year
  Sex: Female
  Weight: 49 kg

DRUGS (3)
  1. LEVEMIR FLEXPEN(INSULIN DETERMIR) SOLUTION FOR INJECTION,.0024MOL/L [Suspect]
     Indication: DIABETES MELLITUS
     Dosage: 22 LU, SINGLE, SUBCUTANEOUS
     Route: 058
     Dates: start: 20060523
  2. NOVOLOG [Suspect]
     Indication: DIABETES MELLITUS
     Dosage: SLIDING SCALE, SUBCUTANEOUS
     Route: 058
  3. GLUCERNA (VITAMINS NOS, MINERALS NOS, FRUCTOSE, GLYCINE MAX SEED OIL, [Concomitant]

REACTIONS (1)
  - BLOOD GLUCOSE DECREASED [None]
